FAERS Safety Report 6690625-5 (Version None)
Quarter: 2010Q2

REPORT INFORMATION
  Report Type: 
  Country: None (occurrence: None)
  Receive Date: 20100421
  Receipt Date: 20100412
  Transmission Date: 20101027
  Serious: Yes (Other)
  Sender: FDA-Public Use
  Company Number: US-JNJFOC-20100403107

PATIENT
  Sex: Male

DRUGS (1)
  1. RISPERDAL [Suspect]
     Indication: SCHIZOPHRENIA
     Route: 048

REACTIONS (4)
  - ERECTILE DYSFUNCTION [None]
  - PAPILLOMA VIRAL INFECTION [None]
  - URINARY TRACT DISORDER [None]
  - URINARY TRACT INFECTION [None]
